FAERS Safety Report 25087685 (Version 4)
Quarter: 2025Q2

REPORT INFORMATION
  Report Type: Report from Study
  Country: CA (occurrence: CA)
  Receive Date: 20250318
  Receipt Date: 20250526
  Transmission Date: 20250717
  Serious: Yes (Other)
  Sender: TAKEDA
  Company Number: CA-TAKEDA-2023TUS021147

PATIENT
  Age: 79 Year
  Sex: Male

DRUGS (21)
  1. VEDOLIZUMAB [Suspect]
     Active Substance: VEDOLIZUMAB
     Indication: Colitis ulcerative
  2. VEDOLIZUMAB [Suspect]
     Active Substance: VEDOLIZUMAB
  3. VEDOLIZUMAB [Suspect]
     Active Substance: VEDOLIZUMAB
  4. VEDOLIZUMAB [Suspect]
     Active Substance: VEDOLIZUMAB
     Dosage: 300 MILLIGRAM, Q4WEEKS
     Dates: start: 20250520
  5. PANTOPRAZOLE SODIUM [Suspect]
     Active Substance: PANTOPRAZOLE SODIUM
     Indication: Product used for unknown indication
  6. NORVASC [Concomitant]
     Active Substance: AMLODIPINE BESYLATE
  7. ASPIRIN [Concomitant]
     Active Substance: ASPIRIN
  8. SYNTHROID [Concomitant]
     Active Substance: LEVOTHYROXINE SODIUM
  9. VESICARE [Concomitant]
     Active Substance: SOLIFENACIN SUCCINATE
  10. CALCIUM [Concomitant]
     Active Substance: CALCIUM
  11. MIRAPEX [Concomitant]
     Active Substance: PRAMIPEXOLE DIHYDROCHLORIDE
  12. Ferrodan [Concomitant]
  13. AMLODIPINE BESYLATE\PERINDOPRIL ARGININE [Concomitant]
     Active Substance: AMLODIPINE BESYLATE\PERINDOPRIL ARGININE
  14. ALVESCO [Concomitant]
     Active Substance: CICLESONIDE
     Dosage: UNK UNK, QD
  15. VENTOLIN [Concomitant]
     Active Substance: ALBUTEROL SULFATE
  16. Pdp isoniazid [Concomitant]
  17. VITAMIN B6 [Concomitant]
     Active Substance: PYRIDOXINE HYDROCHLORIDE
  18. ENTOCORT [Concomitant]
     Active Substance: BUDESONIDE
  19. ATORVASTATIN [Concomitant]
     Active Substance: ATORVASTATIN
  20. VITAMIN D3 [Concomitant]
     Active Substance: CHOLECALCIFEROL
  21. VITAMIN D [Concomitant]
     Active Substance: VITAMIN D NOS

REACTIONS (6)
  - Haematochezia [Unknown]
  - Cataract [Not Recovered/Not Resolved]
  - Proctitis ulcerative [Unknown]
  - Therapeutic reaction time decreased [Not Recovered/Not Resolved]
  - Off label use [Unknown]
  - Blood pressure increased [Unknown]

NARRATIVE: CASE EVENT DATE: 20250520
